FAERS Safety Report 11351621 (Version 1)
Quarter: 2015Q3

REPORT INFORMATION
  Report Type: Spontaneous
  Country: US (occurrence: US)
  Receive Date: 20150807
  Receipt Date: 20150807
  Transmission Date: 20151125
  Serious: No
  Sender: FDA-Public Use
  Company Number: US-JNJFOC-20150202346

PATIENT
  Age: 52 Year
  Sex: Female
  Weight: 56.7 kg

DRUGS (2)
  1. ROGAINE UNSPECIFIED [Suspect]
     Active Substance: MINOXIDIL
     Indication: ALOPECIA
     Dosage: TWICE A DAY
     Route: 061
  2. ROGAINE UNSPECIFIED [Suspect]
     Active Substance: MINOXIDIL
     Route: 061

REACTIONS (3)
  - Dry skin [Recovered/Resolved]
  - Pruritus [Recovered/Resolved]
  - Hair colour changes [Unknown]
